FAERS Safety Report 7362693-9 (Version None)
Quarter: 2011Q1

REPORT INFORMATION
  Report Type: 
  Country: None (occurrence: None)
  Receive Date: 20110321
  Receipt Date: 20110311
  Transmission Date: 20110831
  Serious: Yes (Hospitalization, Other)
  Sender: FDA-Public Use
  Company Number: US-BIOGENIDEC-2010BI037791

PATIENT
  Sex: Male

DRUGS (2)
  1. AVONEX [Suspect]
     Route: 030
     Dates: start: 20100901
  2. AVONEX [Suspect]
     Indication: MULTIPLE SCLEROSIS
     Route: 030
     Dates: start: 20060101, end: 20100824

REACTIONS (7)
  - INFLUENZA LIKE ILLNESS [None]
  - LACERATION [None]
  - ELECTROCARDIOGRAM [None]
  - CHEST PAIN [None]
  - MALIGNANT MELANOMA [None]
  - CORONARY ARTERY OCCLUSION [None]
  - PROCEDURAL COMPLICATION [None]
